FAERS Safety Report 9607468 (Version 1)
Quarter: 2013Q4

REPORT INFORMATION
  Report Type: Spontaneous
  Country: US (occurrence: None)
  Receive Date: 20131007
  Receipt Date: 20131007
  Transmission Date: 20140711
  Serious: Yes (Other)
  Sender: FDA-Public Use
  Company Number: PRED20130063

PATIENT
  Age: 57 Year
  Sex: Female

DRUGS (3)
  1. PREDNISONE TABLETS (PREDNISONE) (7.5 MILLIGRAM) [Suspect]
     Indication: IMMUNOSUPPRESSANT DRUG THERAPY
  2. TACROLIMUS (TACROLIMUS) 1 MILLIGRAM [Suspect]
     Indication: IMMUNOSUPPRESSANT DRUG THERAPY
  3. MYCOPHENOLATE (MYCOPHENOLATE MOFETIL) (500 MILLIGRAM, UNKNOWN) [Suspect]
     Indication: IMMUNOSUPPRESSANT DRUG THERAPY

REACTIONS (5)
  - B-cell lymphoma [None]
  - Second primary malignancy [None]
  - Central nervous system lymphoma [None]
  - Normochromic normocytic anaemia [None]
  - Epstein-Barr virus antigen positive [None]
